FAERS Safety Report 21274338 (Version 1)
Quarter: 2022Q3

REPORT INFORMATION
  Report Type: Spontaneous
  Country: US (occurrence: None)
  Receive Date: 20220830
  Receipt Date: 20220830
  Transmission Date: 20221026
  Serious: Yes (Hospitalization, Disabling)
  Sender: FDA-Public Use
  Company Number: None

PATIENT
  Age: 79 Year
  Sex: Female
  Weight: 58.5 kg

DRUGS (1)
  1. STELARA [Suspect]
     Active Substance: USTEKINUMAB
     Indication: Crohn^s disease
     Dates: start: 20210907, end: 20211102

REACTIONS (12)
  - Influenza like illness [None]
  - Electrolyte imbalance [None]
  - Nervous system disorder [None]
  - Cognitive disorder [None]
  - Gait disturbance [None]
  - Hypertension [None]
  - Diabetes mellitus inadequate control [None]
  - Posterior reversible encephalopathy syndrome [None]
  - Confusional state [None]
  - Disorientation [None]
  - Fall [None]
  - Hip fracture [None]

NARRATIVE: CASE EVENT DATE: 20210910
